FAERS Safety Report 8291451-6 (Version None)
Quarter: 2012Q2

REPORT INFORMATION
  Report Type: 
  Country: None (occurrence: None)
  Receive Date: 20120417
  Receipt Date: 20120409
  Transmission Date: 20120825
  Serious: Yes (Hospitalization)
  Sender: FDA-Public Use
  Company Number: US-CELGENEUS-163-21880-09042541

PATIENT
  Sex: Female

DRUGS (15)
  1. SYNTHROID [Concomitant]
     Dosage: 50 MICROGRAM
     Route: 065
  2. VALTREX [Concomitant]
     Dosage: 500 MILLIGRAM
     Route: 048
  3. LOVAZA [Concomitant]
     Dosage: 1000 MILLIGRAM
     Route: 065
  4. DIOVAN [Concomitant]
     Dosage: 160 MILLIGRAM
     Route: 048
  5. FLOVENT [Concomitant]
     Dosage: 1 PUFF
     Route: 055
  6. GLUCOSAMINE/CHRONDROITIN [Concomitant]
     Dosage: 1000 MILLIGRAM
     Route: 065
  7. ASCORBIC ACID [Concomitant]
     Dosage: 1000 MILLIGRAM
     Route: 065
  8. ZOLOFT [Concomitant]
     Dosage: 50 MILLIGRAM
     Route: 065
  9. REVLIMID [Suspect]
     Dosage: 5 MILLIGRAM
     Route: 048
     Dates: start: 20090319, end: 20090412
  10. VITAMIN B1 TAB [Concomitant]
     Indication: SUPPLEMENTATION THERAPY
     Dosage: 1 DOSAGE FORMS
     Route: 065
  11. FENTANYL [Concomitant]
     Dosage: 25 MICROGRAM
     Route: 062
  12. HYDROCODONE [Concomitant]
     Indication: PAIN
     Dosage: 500 MILLIGRAM
     Route: 065
  13. RITUXIMAB [Suspect]
     Dosage: 705 MILLIGRAM
     Route: 041
     Dates: start: 20090305, end: 20090305
  14. VITAMIN B-12 [Concomitant]
     Indication: SUPPLEMENTATION THERAPY
     Dosage: 1 DOSAGE FORMS
     Route: 065
  15. VITAMIN E [Concomitant]
     Dosage: 400 IU (INTERNATIONAL UNIT)
     Route: 065

REACTIONS (3)
  - FEBRILE NEUTROPENIA [None]
  - CONSTIPATION [None]
  - ABDOMINAL MASS [None]
